FAERS Safety Report 14401536 (Version 1)
Quarter: 2018Q1

REPORT INFORMATION
  Report Type: Spontaneous
  Country: CZ (occurrence: CZ)
  Receive Date: 20180117
  Receipt Date: 20180117
  Transmission Date: 20180509
  Serious: Yes (Other)
  Sender: FDA-Public Use
  Company Number: CZ-BAYER-2017-238616

PATIENT
  Age: 38 Year
  Sex: Female

DRUGS (1)
  1. GADOVIST [Suspect]
     Active Substance: GADOBUTROL
     Indication: NUCLEAR MAGNETIC RESONANCE IMAGING
     Dosage: UNK UNK, ONCE
     Route: 042
     Dates: start: 20170915, end: 20170915

REACTIONS (13)
  - Insomnia [None]
  - Anxiety [None]
  - Nephropathy [None]
  - Nontherapeutic agent urine positive [None]
  - Urine analysis abnormal [None]
  - Neuropsychiatric symptoms [None]
  - Headache [None]
  - Musculoskeletal disorder [None]
  - Disturbance in attention [None]
  - Loss of control of legs [None]
  - Vertigo [None]
  - Toxicity to various agents [None]
  - Condition aggravated [None]

NARRATIVE: CASE EVENT DATE: 20170915
